FAERS Safety Report 18880000 (Version 2)
Quarter: 2021Q2

REPORT INFORMATION
  Report Type: Report from Study
  Country: CN (occurrence: CN)
  Receive Date: 20210211
  Receipt Date: 20210414
  Transmission Date: 20210717
  Serious: Yes (Hospitalization)
  Sender: FDA-Public Use
  Company Number: CN-PFIZER INC-2021095676

PATIENT
  Age: 60 Year
  Sex: Female
  Weight: 57 kg

DRUGS (5)
  1. IBUPROFEN. [Concomitant]
     Active Substance: IBUPROFEN
     Indication: INTERVERTEBRAL DISC DEGENERATION
     Dosage: 1 TABLET, 3X/DAY (COMPOUND TABLET)
     Route: 048
     Dates: start: 20210120, end: 20210121
  2. SUNITINIB MALATE. [Suspect]
     Active Substance: SUNITINIB MALATE
     Indication: GASTROINTESTINAL STROMAL TUMOUR
     Dosage: 50 MG, 1X/DAY
     Route: 048
     Dates: start: 20201208, end: 20201223
  3. SODIUM AESCINATE [Concomitant]
     Active Substance: SODIUM ESCINATE
     Indication: INTERVERTEBRAL DISC DEGENERATION
     Dosage: 30 MG, 2X/DAY
     Route: 048
     Dates: start: 20210120, end: 20210121
  4. ENTECAVIR. [Concomitant]
     Active Substance: ENTECAVIR
     Indication: HEPATITIS B
     Dosage: 0.5 MG, 1X/DAY
     Route: 048
     Dates: start: 1990
  5. SUNITINIB MALATE. [Suspect]
     Active Substance: SUNITINIB MALATE
     Dosage: 37.5 MG, 1X/DAY
     Route: 048
     Dates: start: 20201224, end: 20210120

REACTIONS (2)
  - Spondylolisthesis [Recovered/Resolved]
  - Spondylolysis [Recovered/Resolved]

NARRATIVE: CASE EVENT DATE: 20210121
